FAERS Safety Report 8059526-4 (Version None)
Quarter: 2012Q1

REPORT INFORMATION
  Report Type: 
  Country: None (occurrence: None)
  Receive Date: 20120120
  Receipt Date: 20120110
  Transmission Date: 20120608
  Serious: Yes (Hospitalization)
  Sender: FDA-Public Use
  Company Number: JP-ROCHE-1019581

PATIENT
  Sex: Female
  Weight: 74 kg

DRUGS (14)
  1. TACROLIMUS [Suspect]
     Indication: RHEUMATOID ARTHRITIS
     Route: 048
     Dates: start: 20110104, end: 20110509
  2. VOLTAREN [Concomitant]
     Indication: RHEUMATOID ARTHRITIS
     Route: 048
     Dates: start: 20110510, end: 20111128
  3. ACTEMRA [Suspect]
     Dosage: DOSAGE IS UNCERTAIN.
     Route: 041
     Dates: start: 20110705, end: 20111108
  4. ACTEMRA [Suspect]
     Indication: RHEUMATOID ARTHRITIS
     Dosage: DOSAGE IS UNCERTAIN.
     Route: 041
     Dates: start: 20110405, end: 20110607
  5. TACROLIMUS [Suspect]
     Route: 048
     Dates: start: 20110607, end: 20110905
  6. PREDNISOLONE [Concomitant]
     Indication: RHEUMATOID ARTHRITIS
     Dosage: 1-2MG
     Route: 048
     Dates: start: 20110201, end: 20110905
  7. MICARDIS [Concomitant]
     Route: 048
     Dates: start: 20111004, end: 20111128
  8. METHOTREXATE [Suspect]
     Indication: RHEUMATOID ARTHRITIS
     Dosage: DOSAGE IS UNCERTAIN.
     Route: 048
     Dates: start: 20100601, end: 20111128
  9. TACROLIMUS [Suspect]
     Route: 048
     Dates: start: 20110906, end: 20111128
  10. PREDNISOLONE [Concomitant]
     Dosage: 1-2MG
     Route: 048
     Dates: start: 20110906, end: 20111203
  11. FOLIC ACID [Concomitant]
     Indication: PROPHYLAXIS
     Route: 048
     Dates: start: 20110104, end: 20111128
  12. MICARDIS [Concomitant]
     Indication: HYPERTENSION
     Route: 048
     Dates: start: 20110104, end: 20111003
  13. TACROLIMUS [Suspect]
     Route: 048
     Dates: start: 20110510, end: 20110606
  14. CONIEL [Concomitant]
     Indication: HYPERTENSION
     Route: 048
     Dates: start: 20111108, end: 20111128

REACTIONS (3)
  - PSOAS ABSCESS [None]
  - DISSEMINATED INTRAVASCULAR COAGULATION [None]
  - MENINGITIS BACTERIAL [None]
